FAERS Safety Report 12898160 (Version 1)
Quarter: 2016Q4

REPORT INFORMATION
  Report Type: Report from Study
  Country: US (occurrence: US)
  Receive Date: 20161031
  Receipt Date: 20161031
  Transmission Date: 20170207
  Serious: Yes (Hospitalization)
  Sender: FDA-Public Use
  Company Number: US-EXELIXIS-CABO-16007389

PATIENT
  Age: 67 Year
  Sex: Male

DRUGS (13)
  1. SENNA-S [Concomitant]
     Active Substance: DOCUSATE SODIUM\SENNOSIDES
  2. COENZYME Q10 [Concomitant]
     Active Substance: UBIDECARENONE
  3. LOPRESSOR [Concomitant]
     Active Substance: METOPROLOL TARTRATE
  4. PANTOPRAZOLE SODIUM. [Concomitant]
     Active Substance: PANTOPRAZOLE SODIUM
  5. COLACE [Concomitant]
     Active Substance: DOCUSATE SODIUM
  6. NORCO [Concomitant]
     Active Substance: ACETAMINOPHEN\HYDROCODONE BITARTRATE
  7. CABOMETYX [Suspect]
     Active Substance: CABOZANTINIB S-MALATE
     Indication: RENAL CANCER
     Dosage: 40 MG, QD
     Route: 048
     Dates: start: 20161012, end: 201610
  8. OCUVITE [Concomitant]
     Active Substance: VITAMINS
  9. LEVOFLOXACIN. [Concomitant]
     Active Substance: LEVOFLOXACIN
  10. MULTIVITAMIN [Concomitant]
     Active Substance: VITAMINS
  11. DEXAMETHASONE. [Concomitant]
     Active Substance: DEXAMETHASONE
  12. TAMSULOSIN HCL [Concomitant]
     Active Substance: TAMSULOSIN
  13. PRAVASTATIN SODIUM. [Concomitant]
     Active Substance: PRAVASTATIN SODIUM

REACTIONS (1)
  - Pain [Unknown]

NARRATIVE: CASE EVENT DATE: 20161019
